FAERS Safety Report 5483971-4 (Version None)
Quarter: 2007Q4

REPORT INFORMATION
  Report Type: 
  Country: None (occurrence: None)
  Receive Date: 20071012
  Receipt Date: 20071002
  Transmission Date: 20080405
  Serious: Yes (Disabling)
  Sender: FDA-Public Use
  Company Number: FR-ROCHE-522994

PATIENT
  Age: 76 Year
  Sex: Male

DRUGS (2)
  1. VALIUM [Suspect]
     Indication: ANXIETY
     Route: 065
  2. LAROXYL [Suspect]
     Indication: DRUG USE FOR UNKNOWN INDICATION
     Route: 065

REACTIONS (1)
  - AMYOTROPHY [None]
